FAERS Safety Report 20892975 (Version 1)
Quarter: 2022Q2

REPORT INFORMATION
  Report Type: Spontaneous
  Country: US (occurrence: None)
  Receive Date: 20220531
  Receipt Date: 20220531
  Transmission Date: 20220721
  Serious: No
  Sender: FDA-Public Use
  Company Number: US-Hikma Pharmaceuticals USA Inc.-US-H14001-21-04254

PATIENT
  Age: 78 Year
  Sex: Female
  Weight: 52.61 kg

DRUGS (5)
  1. FLUTICASONE [Suspect]
     Active Substance: FLUTICASONE
     Indication: Sinusitis
     Route: 045
     Dates: start: 20210910, end: 20210911
  2. DORZOLAMIDE [Concomitant]
     Active Substance: DORZOLAMIDE
     Indication: Glaucoma
     Dosage: UNKNOWN
     Route: 065
     Dates: start: 2010
  3. TIMOLOL [Concomitant]
     Active Substance: TIMOLOL
     Indication: Glaucoma
     Dosage: UNKNOWN
     Route: 065
     Dates: start: 2010
  4. BRIMONIDINE TARTRATE [Concomitant]
     Active Substance: BRIMONIDINE TARTRATE
     Indication: Product used for unknown indication
     Dosage: UNKNOWN
     Route: 065
  5. ASPIRIN [Concomitant]
     Active Substance: ASPIRIN
     Indication: Product used for unknown indication
     Dosage: UNKNOWN
     Route: 065

REACTIONS (4)
  - Dizziness [Recovered/Resolved]
  - Vertigo [Recovered/Resolved]
  - Vision blurred [Recovered/Resolved]
  - Product use in unapproved indication [Recovered/Resolved]

NARRATIVE: CASE EVENT DATE: 20210910
